FAERS Safety Report 5383969-0 (Version None)
Quarter: 2007Q3

REPORT INFORMATION
  Report Type: 
  Country: None (occurrence: None)
  Receive Date: 20070711
  Receipt Date: 20070709
  Transmission Date: 20080115
  Serious: Yes (Other)
  Sender: FDA-Public Use
  Company Number: DE-BRISTOL-MYERS SQUIBB COMPANY-13839410

PATIENT
  Age: 42 Year
  Sex: Male
  Weight: 104 kg

DRUGS (2)
  1. METFORMIN HCL [Suspect]
     Indication: TYPE 2 DIABETES MELLITUS
     Dates: start: 20070410
  2. EXENATIDE [Suspect]
     Indication: TYPE 2 DIABETES MELLITUS
     Dates: start: 20070410

REACTIONS (4)
  - CARDIOVASCULAR INSUFFICIENCY [None]
  - DIARRHOEA [None]
  - GASTROENTERITIS NORWALK VIRUS [None]
  - VOMITING [None]
